FAERS Safety Report 4546315-8 (Version None)
Quarter: 2005Q1

REPORT INFORMATION
  Report Type: 
  Country: None (occurrence: None)
  Receive Date: 20050103
  Receipt Date: 20041217
  Transmission Date: 20050727
  Serious: Yes (Hospitalization)
  Sender: FDA-Public Use
  Company Number: S04-SWI-08103-01

PATIENT
  Age: 73 Year
  Sex: Female

DRUGS (5)
  1. CITALOPRAM HYDROBROMIDE [Suspect]
     Indication: AFFECTIVE DISORDER
     Dosage: 20 MG QD PO
     Route: 048
     Dates: start: 20041006, end: 20041009
  2. CITALOPRAM HYDROBROMIDE [Suspect]
     Indication: DEPRESSION
     Dosage: 20 MG QD PO
     Route: 048
     Dates: start: 20041006, end: 20041009
  3. ATACAND PLUS [Suspect]
     Indication: ESSENTIAL HYPERTENSION
     Dosage: 6.25 MG QD PO
     Route: 048
     Dates: start: 20031114, end: 20041009
  4. BELOC ZOK (METOPROLOL SUCCINATE) [Concomitant]
  5. AXOTIDE (FLUTICASONE PROPIONATE) [Concomitant]

REACTIONS (12)
  - BLOOD CHOLESTEROL INCREASED [None]
  - BLOOD GLUCOSE INCREASED [None]
  - BLOOD OSMOLARITY DECREASED [None]
  - BLOOD PRESSURE SYSTOLIC INCREASED [None]
  - CREATININE URINE INCREASED [None]
  - GAIT DISTURBANCE [None]
  - HYPONATRAEMIA [None]
  - LUMBAR SPINAL STENOSIS [None]
  - OSTEOARTHRITIS [None]
  - PAIN [None]
  - URINARY INCONTINENCE [None]
  - URINE SODIUM DECREASED [None]
